FAERS Safety Report 8606578 (Version 2)
Quarter: 2014Q1

REPORT INFORMATION
  Report Type: Spontaneous
  Country: US (occurrence: US)
  Receive Date: 20120608
  Receipt Date: 20140325
  Transmission Date: 20141002
  Serious: No
  Sender: FDA-Public Use
  Company Number: US-ASTRAZENECA-2011SE67426

PATIENT
  Age: 68 Year
  Sex: Female
  Weight: 149.7 kg

DRUGS (18)
  1. PULMICORT FLEXHALER [Suspect]
     Route: 055
  2. SYMBICORT [Suspect]
     Indication: ASTHMA
     Dosage: 160 MCG/4.5 MCG 2 PUFFS TWICE A DAY
     Route: 055
  3. NEXIUM [Suspect]
     Indication: GASTROOESOPHAGEAL REFLUX DISEASE
     Dosage: TWICE A DAY
     Route: 048
  4. ATENOLOL [Suspect]
     Route: 048
  5. ALBUTEROL INHALER [Concomitant]
  6. AMIODARONE [Concomitant]
  7. DELTIAZEM [Concomitant]
  8. METFORMIN [Concomitant]
  9. WARFARIN SODIUM [Concomitant]
  10. CELEBREX [Concomitant]
  11. ZANTAC [Concomitant]
  12. LEVOTHYROXINE [Concomitant]
     Indication: THYROID DISORDER
  13. HYDROCHLOROTHIAZIDE [Concomitant]
  14. POTASSIUM CITRATE [Concomitant]
     Indication: NEPHROLITHIASIS
  15. TIZANIDINE [Concomitant]
  16. CLONAZEPAM [Concomitant]
  17. PROPRANOLOL [Concomitant]
     Indication: ATRIAL FIBRILLATION
  18. VITAMINS [Concomitant]

REACTIONS (9)
  - Inappropriate schedule of drug administration [Unknown]
  - Drug dose omission [Unknown]
  - Drug ineffective [Unknown]
  - Asthma [Unknown]
  - Malaise [Unknown]
  - Gastrooesophageal reflux disease [Unknown]
  - Aspiration [Unknown]
  - Pharyngeal disorder [Unknown]
  - Incorrect dose administered by device [Unknown]
